FAERS Safety Report 9637950 (Version 1)
Quarter: 2013Q4

REPORT INFORMATION
  Report Type: Spontaneous
  Country: US (occurrence: US)
  Receive Date: 20131022
  Receipt Date: 20131022
  Transmission Date: 20140711
  Serious: Yes (Hospitalization)
  Sender: FDA-Public Use
  Company Number: US-ELI_LILLY_AND_COMPANY-US201310005335

PATIENT
  Sex: Female

DRUGS (5)
  1. FORTEO [Suspect]
     Indication: HIP FRACTURE
     Dosage: UNK
     Route: 065
     Dates: start: 201212
  2. FUROSEMIDE [Concomitant]
     Indication: OEDEMA
     Dosage: UNK
     Route: 065
  3. FUROSEMIDE [Concomitant]
     Indication: SWELLING
  4. TORSEMIDE [Concomitant]
     Indication: OEDEMA
     Dosage: 10 MG, UNK
     Route: 065
  5. TORSEMIDE [Concomitant]
     Indication: SWELLING

REACTIONS (6)
  - Blood potassium decreased [Unknown]
  - Memory impairment [Unknown]
  - Impaired healing [Unknown]
  - Oedema [Unknown]
  - Swelling [Unknown]
  - Off label use [Unknown]
